FAERS Safety Report 23635025 (Version 1)
Quarter: 2024Q1

REPORT INFORMATION
  Report Type: Spontaneous
  Country: US (occurrence: US)
  Receive Date: 20240315
  Receipt Date: 20240315
  Transmission Date: 20240410
  Serious: Yes (Death, Other)
  Sender: FDA-Public Use
  Company Number: US-SANDOZ-SDZ2024US027752

PATIENT
  Sex: Male

DRUGS (1)
  1. ZIEXTENZO [Suspect]
     Active Substance: PEGFILGRASTIM-BMEZ
     Indication: Lung neoplasm malignant
     Dosage: 6 MG (MILLIGRAM); INJECT ONCE 24 HOURS AFTER CHEMO FOR DURING EACH 21 DAY CYCLE
     Route: 058
     Dates: start: 20230512, end: 20231105

REACTIONS (1)
  - Death [Fatal]
